FAERS Safety Report 6023603-X (Version None)
Quarter: 2008Q4

REPORT INFORMATION
  Report Type: 
  Country: None (occurrence: None)
  Receive Date: 20081223
  Receipt Date: 20081223
  Transmission Date: 20090506
  Serious: Yes (Hospitalization)
  Sender: FDA-Public Use
  Company Number: None

PATIENT
  Age: 34 Year
  Sex: Male

DRUGS (2)
  1. RIFAMPIN [Suspect]
     Indication: OSTEOMYELITIS
     Dosage: 600 MG EVERY DAY PO
     Route: 048
     Dates: start: 20081119, end: 20081202
  2. RIFAMPIN [Suspect]
     Indication: STAPHYLOCOCCAL INFECTION
     Dosage: 600 MG EVERY DAY PO
     Route: 048
     Dates: start: 20081119, end: 20081202

REACTIONS (1)
  - THROMBOCYTOPENIA [None]
